FAERS Safety Report 15477845 (Version 1)
Quarter: 2018Q4

REPORT INFORMATION
  Report Type: Spontaneous
  Country: US (occurrence: US)
  Receive Date: 20181002
  Receipt Date: 20181002
  Transmission Date: 20190205
  Serious: Yes (Hospitalization, Other)
  Sender: FDA-Public Use
  Company Number: None

PATIENT
  Age: 66 Year
  Sex: Male
  Weight: 83.25 kg

DRUGS (8)
  1. LORTAB [Suspect]
     Active Substance: ACETAMINOPHEN\HYDROCODONE BITARTRATE
     Indication: NEUROPATHY PERIPHERAL
     Dosage: ?          OTHER STRENGTH:10 325;?
     Route: 048
     Dates: start: 20050601
  2. NORCO [Concomitant]
     Active Substance: ACETAMINOPHEN\HYDROCODONE BITARTRATE
  3. LORTAB [Suspect]
     Active Substance: ACETAMINOPHEN\HYDROCODONE BITARTRATE
     Indication: ARTHRITIS
     Dosage: ?          OTHER STRENGTH:10 325;?
     Route: 048
     Dates: start: 20050601
  4. LYRICA [Concomitant]
     Active Substance: PREGABALIN
  5. LORTAB [Suspect]
     Active Substance: ACETAMINOPHEN\HYDROCODONE BITARTRATE
     Indication: SPINAL OPERATION
     Dosage: ?          OTHER STRENGTH:10 325;?
     Route: 048
     Dates: start: 20050601
  6. RAPAFLO [Concomitant]
     Active Substance: SILODOSIN
  7. HYDROCHLOROTHIAZIDE. [Concomitant]
     Active Substance: HYDROCHLOROTHIAZIDE
  8. CRESTOR [Concomitant]
     Active Substance: ROSUVASTATIN CALCIUM

REACTIONS (7)
  - Therapeutic response decreased [None]
  - Pain [None]
  - Inadequate analgesia [None]
  - Condition aggravated [None]
  - Back pain [None]
  - Pain in extremity [None]
  - Musculoskeletal stiffness [None]

NARRATIVE: CASE EVENT DATE: 20180906
